FAERS Safety Report 8131408-9 (Version None)
Quarter: 2012Q1

REPORT INFORMATION
  Report Type: 
  Country: None (occurrence: None)
  Receive Date: 20120213
  Receipt Date: 20120203
  Transmission Date: 20120608
  Serious: Yes (Hospitalization)
  Sender: FDA-Public Use
  Company Number: US-BAYER-2011-033935

PATIENT
  Age: 25 Year
  Sex: Female
  Weight: 85 kg

DRUGS (2)
  1. NAPROXEN [Concomitant]
     Dosage: 500 MG, PRN
     Route: 048
     Dates: start: 20081206
  2. DROSPIRENONE AND ETHINYL ESTRADIOL [Suspect]
     Dosage: UNK
     Dates: start: 20080901, end: 20090101

REACTIONS (9)
  - MENTAL DISORDER [None]
  - PULMONARY EMBOLISM [None]
  - CHEST PAIN [None]
  - ANHEDONIA [None]
  - HYPOTENSION [None]
  - CYST [None]
  - INJURY [None]
  - PAIN [None]
  - ANXIETY [None]
